FAERS Safety Report 6582765-6 (Version None)
Quarter: 2010Q1

REPORT INFORMATION
  Report Type: 
  Country: None (occurrence: None)
  Receive Date: 20100216
  Receipt Date: 20100205
  Transmission Date: 20100710
  Serious: Yes (Other)
  Sender: FDA-Public Use
  Company Number: BR-PFIZER INC-2010015926

PATIENT
  Age: 71 Year
  Sex: Female
  Weight: 48 kg

DRUGS (3)
  1. DETRUSITOL [Suspect]
     Indication: NEUROGENIC BLADDER
     Dosage: 2 MG, 2X/DAY
     Route: 048
     Dates: start: 20040101
  2. MACRODANTINA [Concomitant]
     Dosage: UNK
  3. GABAPENTIN [Concomitant]
     Dosage: UNK

REACTIONS (2)
  - HUMAN T-CELL LYMPHOTROPIC VIRUS TYPE I INFECTION [None]
  - THROMBOSIS [None]
